FAERS Safety Report 7818019 (Version 2)
Quarter: 2013Q1

REPORT INFORMATION
  Report Type: Spontaneous
  Country: US (occurrence: US)
  Receive Date: 20110217
  Receipt Date: 20130325
  Transmission Date: 20140127
  Serious: No
  Sender: FDA-Public Use
  Company Number: US-BIOGENIDEC-2011BI004868

PATIENT
  Age: 37 Year
  Sex: Female

DRUGS (7)
  1. AVONEX [Suspect]
     Indication: MULTIPLE SCLEROSIS
     Route: 030
     Dates: start: 20090225, end: 20110131
  2. AVONEX [Suspect]
     Indication: MULTIPLE SCLEROSIS
     Route: 030
  3. EVENING PRIMROSE OIL [Concomitant]
  4. MULTI-DAY VITAMINS [Concomitant]
  5. FISH OIL [Concomitant]
  6. MSM [Concomitant]
  7. B COMPLEX 50 [Concomitant]

REACTIONS (7)
  - Increased appetite [Recovered/Resolved]
  - Weight increased [Recovered/Resolved]
  - Nasal congestion [Recovered/Resolved]
  - Oropharyngeal pain [Recovered/Resolved]
  - White blood cell count decreased [Unknown]
  - Influenza like illness [Recovered/Resolved]
  - Injection site pain [Recovered/Resolved]
